FAERS Safety Report 8026938-4 (Version None)
Quarter: 2012Q1

REPORT INFORMATION
  Report Type: 
  Country: None (occurrence: None)
  Receive Date: 20120103
  Receipt Date: 20111220
  Transmission Date: 20120608
  Serious: Yes (Other)
  Sender: FDA-Public Use
  Company Number: 2011SP059263

PATIENT
  Age: 64 Year
  Sex: Male
  Weight: 59 kg

DRUGS (4)
  1. INTERFERON [Suspect]
     Indication: HEPATITIS C
     Dosage: 3 MIU; BID; IV, 3 MIU; QD; IV
     Route: 042
     Dates: start: 20100827, end: 20100902
  2. INTERFERON [Suspect]
     Indication: HEPATITIS C
     Dosage: 3 MIU; BID; IV, 3 MIU; QD; IV
     Route: 042
     Dates: start: 20100808, end: 20100826
  3. REBETOL [Suspect]
     Indication: HEPATITIS C
     Dosage: 600  MG; QD; PO
     Route: 048
     Dates: start: 20100808, end: 20100902
  4. LOXOPROFEN [Concomitant]

REACTIONS (1)
  - PROTEINURIA [None]
